FAERS Safety Report 8160771-8 (Version None)
Quarter: 2012Q1

REPORT INFORMATION
  Report Type: 
  Country: None (occurrence: None)
  Receive Date: 20120223
  Receipt Date: 20120214
  Transmission Date: 20120608
  Serious: Yes (Other)
  Sender: FDA-Public Use
  Company Number: PHHY2012NL013049

PATIENT
  Sex: Female

DRUGS (6)
  1. FEMARA [Concomitant]
  2. ZOMETA [Suspect]
     Dates: start: 20090305
  3. ZOMETA [Suspect]
     Dates: start: 20111220
  4. ZOMETA [Suspect]
     Dates: start: 20120214
  5. ACETAMINOPHEN [Concomitant]
  6. ZOMETA [Suspect]
     Indication: BREAST CANCER METASTATIC
     Dosage: 4 MG/100ML ONE PER 56 DAYS
     Route: 042

REACTIONS (10)
  - NOROVIRUS TEST POSITIVE [None]
  - CARBOHYDRATE ANTIGEN 125 INCREASED [None]
  - NEOPLASM MALIGNANT [None]
  - LENTIGO [None]
  - LIVER FUNCTION TEST ABNORMAL [None]
  - VIITH NERVE PARALYSIS [None]
  - NEOPLASM PROGRESSION [None]
  - HERPES VIRUS INFECTION [None]
  - FATIGUE [None]
  - METASTASES TO BONE [None]
